FAERS Safety Report 7389059 (Version 3)
Quarter: 2015Q4

REPORT INFORMATION
  Report Type: Spontaneous
  Country: US (occurrence: US)
  Receive Date: 20100517
  Receipt Date: 20151102
  Transmission Date: 20160305
  Serious: No
  Sender: FDA-Public Use
  Company Number: US-BIOGENIDEC-2010BI015704

PATIENT
  Age: 44 Year
  Sex: Female

DRUGS (1)
  1. TYSABRI [Suspect]
     Active Substance: NATALIZUMAB
     Indication: MULTIPLE SCLEROSIS
     Route: 042
     Dates: start: 20070202, end: 20131217

REACTIONS (14)
  - Migraine [Recovered/Resolved]
  - Fatigue [Recovered/Resolved]
  - Joint swelling [Not Recovered/Not Resolved]
  - Depression [Recovered/Resolved]
  - Pruritus [Recovered/Resolved]
  - Mood swings [Not Recovered/Not Resolved]
  - Burning sensation [Not Recovered/Not Resolved]
  - Urticaria [Recovered/Resolved]
  - Vaginal infection [Recovered/Resolved]
  - Stress [Not Recovered/Not Resolved]
  - Paraesthesia [Recovered/Resolved]
  - Memory impairment [Not Recovered/Not Resolved]
  - Vitamin D decreased [Not Recovered/Not Resolved]
  - Rash [Recovered/Resolved]

NARRATIVE: CASE EVENT DATE: 2007
